FAERS Safety Report 10473562 (Version 1)
Quarter: 2014Q3

REPORT INFORMATION
  Report Type: Spontaneous
  Country: FR (occurrence: None)
  Receive Date: 20140922
  Receipt Date: 20140922
  Transmission Date: 20150326
  Serious: Yes (Life-Threatening, Hospitalization)
  Sender: FDA-Public Use
  Company Number: IMP_07923_2014

PATIENT
  Age: 88 Year
  Sex: Female

DRUGS (6)
  1. ACETYLSALICYLATE LYSINE (UNKNOWN) [Concomitant]
  2. LOSARTAN (UNKNOWN) [Concomitant]
     Active Substance: LOSARTAN
  3. CELIPROLOL (UNKNOWN) [Concomitant]
  4. FUROSEMIDE (UNKNOWN) [Concomitant]
     Active Substance: FUROSEMIDE
  5. ACETAMINOPHEN (UNKNOWN) [Concomitant]
     Active Substance: ACETAMINOPHEN
  6. OMEPRAZOLE (OMEPRAZOLE) [Suspect]
     Active Substance: OMEPRAZOLE
     Indication: PRODUCT USED FOR UNKNOWN INDICATION
     Dosage: (DF)?(6 WEEKS 4 DAYS UNTIL NOT CONTINUING)

REACTIONS (6)
  - Dysphagia [None]
  - Dysphonia [None]
  - Lymphadenopathy [None]
  - Leukocytosis [None]
  - Lymphocytosis [None]
  - Drug reaction with eosinophilia and systemic symptoms [None]
